FAERS Safety Report 8660725 (Version 2)
Quarter: 2013Q4

REPORT INFORMATION
  Report Type: Spontaneous
  Country: JP (occurrence: JP)
  Receive Date: 20120711
  Receipt Date: 20131105
  Transmission Date: 20140711
  Serious: Yes (Hospitalization)
  Sender: FDA-Public Use
  Company Number: JP-009507513-1207JPN000085

PATIENT
  Age: 50 Year
  Sex: Female

DRUGS (2)
  1. FOSAMAC TABLETS-5 [Suspect]
     Dosage: UNK
     Route: 048
  2. HORMONES (UNSPECIFIED) [Concomitant]

REACTIONS (1)
  - Joint deposit [Unknown]
